FAERS Safety Report 10951500 (Version 1)
Quarter: 2015Q1

REPORT INFORMATION
  Report Type: Spontaneous
  Country: US (occurrence: US)
  Receive Date: 20150324
  Receipt Date: 20150324
  Transmission Date: 20150721
  Serious: Yes (Other)
  Sender: FDA-Public Use
  Company Number: PHEH2015US005412

PATIENT
  Sex: Female

DRUGS (1)
  1. CLOZARIL [Suspect]
     Active Substance: CLOZAPINE
     Indication: PRODUCT USED FOR UNKNOWN INDICATION
     Route: 065

REACTIONS (9)
  - Pain [Unknown]
  - Dementia Alzheimer^s type [Unknown]
  - Decreased appetite [Unknown]
  - White blood cell count increased [Unknown]
  - Decubitus ulcer [Unknown]
  - Pallor [Unknown]
  - Fatigue [Unknown]
  - Productive cough [Unknown]
  - Vomiting [Unknown]
